FAERS Safety Report 8788882 (Version 1)
Quarter: 2012Q4

REPORT INFORMATION
  Report Type: 
  Country: US (occurrence: US)
  Receive Date: 20120916
  Receipt Date: 20120916
  Transmission Date: 20130627
  Serious: No
  Sender: FDA-Public Use
  Company Number: US-009507513-1209USA003852

PATIENT

DRUGS (2)
  1. SAPHRIS [Suspect]
     Indication: BIPOLAR DISORDER
     Dosage: 5 mg, UNK
     Route: 060
  2. SAPHRIS [Suspect]
     Indication: MOOD SWINGS

REACTIONS (2)
  - Rash pruritic [Recovered/Resolved]
  - Restlessness [Recovered/Resolved]
